FAERS Safety Report 18831512 (Version 1)
Quarter: 2021Q1

REPORT INFORMATION
  Report Type: Spontaneous
  Country: US (occurrence: US)
  Receive Date: 20210203
  Receipt Date: 20210203
  Transmission Date: 20210419
  Serious: Yes (Hospitalization)
  Sender: FDA-Public Use
  Company Number: US-JNJFOC-20210202441

PATIENT
  Age: 54 Year
  Sex: Male
  Weight: 113.9 kg

DRUGS (1)
  1. INVOKANA [Suspect]
     Active Substance: CANAGLIFLOZIN
     Indication: TYPE 2 DIABETES MELLITUS
     Route: 048

REACTIONS (5)
  - Wound infection [Unknown]
  - Foot amputation [Unknown]
  - Osteomyelitis [Unknown]
  - Gangrene [Unknown]
  - Cellulitis [Unknown]

NARRATIVE: CASE EVENT DATE: 201607
